FAERS Safety Report 4417821-1 (Version None)
Quarter: 2004Q2

REPORT INFORMATION
  Report Type: 
  Country: None (occurrence: None)
  Receive Date: 20040624
  Receipt Date: 20030513
  Transmission Date: 20050107
  Serious: No
  Sender: FDA-Public Use
  Company Number: 2003UW06260

PATIENT

DRUGS (2)
  1. SENSORCAINE [Suspect]
     Indication: NERVE BLOCK
     Dates: start: 20030401, end: 20030401
  2. LIDOCAINE [Suspect]
     Indication: NERVE BLOCK
     Dates: start: 20030401, end: 20030401

REACTIONS (1)
  - CONVULSION [None]
